FAERS Safety Report 7622699-9 (Version None)
Quarter: 2011Q3

REPORT INFORMATION
  Report Type: 
  Country: None (occurrence: None)
  Receive Date: 20110719
  Receipt Date: 20110719
  Transmission Date: 20111222
  Serious: No
  Sender: FDA-Public Use
  Company Number: None

PATIENT
  Sex: Male

DRUGS (1)
  1. SUTENT [Suspect]
     Indication: RENAL CANCER
     Dosage: 50MG PO QD
     Route: 048

REACTIONS (4)
  - CHILLS [None]
  - TREMOR [None]
  - EYE SWELLING [None]
  - APHASIA [None]
